FAERS Safety Report 5286309-0 (Version None)
Quarter: 2007Q2

REPORT INFORMATION
  Report Type: 
  Country: None (occurrence: None)
  Receive Date: 20070404
  Receipt Date: 20070330
  Transmission Date: 20071010
  Serious: Yes (Other)
  Sender: FDA-Public Use
  Company Number: JP-MERCK-0703USA03597

PATIENT
  Sex: Female

DRUGS (3)
  1. ALDOMET [Suspect]
     Route: 048
  2. ALDOMET [Suspect]
     Route: 048
     Dates: start: 20070224, end: 20070310
  3. FERROMIA [Suspect]
     Route: 048

REACTIONS (6)
  - ALANINE AMINOTRANSFERASE INCREASED [None]
  - ASPARTATE AMINOTRANSFERASE INCREASED [None]
  - CAESAREAN SECTION [None]
  - DRUG EFFECT DECREASED [None]
  - DRUG EXPOSURE DURING PREGNANCY [None]
  - GAMMA-GLUTAMYLTRANSFERASE INCREASED [None]
